FAERS Safety Report 4917693-2 (Version None)
Quarter: 2006Q1

REPORT INFORMATION
  Report Type: 
  Country: None (occurrence: None)
  Receive Date: 20060221
  Receipt Date: 20051012
  Transmission Date: 20060701
  Serious: Yes (Life-Threatening, Hospitalization)
  Sender: FDA-Public Use
  Company Number: US-ROCHE-421047

PATIENT
  Age: 46 Year
  Sex: Male
  Weight: 68 kg

DRUGS (6)
  1. PEG-INTERFERON A-2A (RO 25-8310) [Suspect]
     Route: 058
     Dates: start: 20050307, end: 20050627
  2. RIBAVIRIN [Suspect]
     Route: 048
     Dates: start: 20050307, end: 20050627
  3. ALCOHOL [Suspect]
     Indication: DRUG USE FOR UNKNOWN INDICATION
     Route: 048
  4. ZOLPIDEM TARTRATE [Concomitant]
     Indication: SOMNOLENCE
     Dosage: AT NIGHT.
     Route: 065
  5. CITALOPRAM HYDROBROMIDE [Concomitant]
     Indication: ANTIDEPRESSANT THERAPY
  6. TEMAZEPAM [Concomitant]
     Indication: SOMNOLENCE
     Dosage: AT NIGHT.

REACTIONS (7)
  - ALCOHOL USE [None]
  - AMNESIA [None]
  - CEREBRAL HAEMORRHAGE [None]
  - COMA [None]
  - PNEUMONIA [None]
  - ROAD TRAFFIC ACCIDENT [None]
  - SPLENIC RUPTURE [None]
